FAERS Safety Report 6222678-2 (Version None)
Quarter: 2009Q2

REPORT INFORMATION
  Report Type: 
  Country: None (occurrence: None)
  Receive Date: 20090611
  Receipt Date: 20090603
  Transmission Date: 20091009
  Serious: Yes (Death, Other)
  Sender: FDA-Public Use
  Company Number: CA-AVENTIS-200915262GDDC

PATIENT
  Age: 78 Year
  Sex: Female
  Weight: 52.5 kg

DRUGS (19)
  1. FLAGYL [Suspect]
     Dosage: DOSE: UNK
  2. DIFLUCAN [Concomitant]
     Route: 048
  3. CLORAZEPATE DIPOTASSIUM [Concomitant]
     Dosage: DOSE: UNK
  4. VANCOMYCIN HCL [Concomitant]
     Route: 048
     Dates: start: 20090505, end: 20090512
  5. DIGESTIVES, INCL ENZYMES [Concomitant]
     Dosage: DOSE: 1 TABLET
     Route: 048
  6. PANTOPRAZOLE SODIUM [Concomitant]
     Indication: GASTRIC DISORDER
     Route: 048
     Dates: start: 20090420, end: 20090512
  7. PANTOPRAZOLE SODIUM [Concomitant]
     Indication: DYSPEPSIA
     Route: 048
     Dates: start: 20090420, end: 20090512
  8. DOMPERIDONE [Concomitant]
     Indication: CONSTIPATION
     Route: 048
     Dates: start: 20090506, end: 20090511
  9. ALACALCIDOL [Concomitant]
     Route: 048
     Dates: start: 20090422, end: 20090512
  10. ALBUTEROL [Concomitant]
     Indication: CHRONIC OBSTRUCTIVE PULMONARY DISEASE
     Route: 055
     Dates: start: 20090420, end: 20090512
  11. ENOXAPARIN SODIUM [Concomitant]
     Indication: ANTICOAGULANT THERAPY
     Dosage: DOSE: 30MG/0.3ML
     Route: 058
     Dates: start: 20090508, end: 20090512
  12. EPOGEN [Concomitant]
     Route: 058
     Dates: start: 20090507, end: 20090512
  13. SIMVASTATIN [Concomitant]
     Indication: CARDIOVASCULAR DISORDER
     Dosage: DOSE: 1 TABLET
     Route: 048
     Dates: start: 20090420, end: 20090511
  14. IMDUR [Concomitant]
     Route: 048
     Dates: start: 20090420, end: 20090512
  15. NORVASC [Concomitant]
     Indication: HYPERTENSION
     Dosage: DOSE: 0.5 TABLET
     Route: 048
     Dates: start: 20090427, end: 20090511
  16. ACETAMINOPHEN [Concomitant]
     Indication: PAIN
     Route: 048
     Dates: start: 20090420, end: 20090511
  17. BENZYDAMINE 0.15% [Concomitant]
     Route: 048
     Dates: start: 20090504, end: 20090512
  18. BENZYDAMINE 0.15% [Concomitant]
     Route: 048
     Dates: start: 20090504, end: 20090512
  19. DIMENHYDRINATE [Concomitant]
     Indication: NAUSEA
     Dates: start: 20090501, end: 20090512

REACTIONS (5)
  - AFFECT LABILITY [None]
  - CONFUSIONAL STATE [None]
  - DEATH [None]
  - DELIRIUM [None]
  - SOMNOLENCE [None]
